FAERS Safety Report 9294003 (Version 1)
Quarter: 2013Q1

REPORT INFORMATION
  Report Type: Spontaneous
  Country: US (occurrence: None)
  Receive Date: 20121214
  Receipt Date: 20121214
  Transmission Date: 20140127
  Serious: No
  Sender: FDA-Public Use
  Company Number: 1208USA006084

PATIENT
  Sex: Male

DRUGS (1)
  1. JANUVIA (SITAGLIPTIN PHOSPHATE) FILM-COATED TABLET, 25MG [Suspect]
     Route: 048

REACTIONS (2)
  - Pancreatitis [None]
  - Underdose [None]
